FAERS Safety Report 8654720 (Version 2)
Quarter: 2012Q4

REPORT INFORMATION
  Report Type: 
  Country: US (occurrence: US)
  Receive Date: 20120709
  Receipt Date: 20120925
  Transmission Date: 20130627
  Serious: Yes (Hospitalization, Other)
  Sender: FDA-Public Use
  Company Number: US-PFIZER INC-2012161119

PATIENT
  Age: 45 Year
  Sex: Female

DRUGS (2)
  1. CHANTIX [Suspect]
     Indication: SMOKING CESSATION THERAPY
     Dosage: Starter pack 0.5 then 1 mg
     Dates: start: 20090426, end: 20090525
  2. LODINE [Concomitant]
     Dosage: UNK
     Dates: start: 2006

REACTIONS (8)
  - Craniocerebral injury [Unknown]
  - Loss of consciousness [Unknown]
  - Injury [Unknown]
  - Migraine [Not Recovered/Not Resolved]
  - Ear pain [Not Recovered/Not Resolved]
  - Eye disorder [Not Recovered/Not Resolved]
  - Balance disorder [Not Recovered/Not Resolved]
  - Neck pain [Not Recovered/Not Resolved]
